FAERS Safety Report 5246954-5 (Version None)
Quarter: 2007Q1

REPORT INFORMATION
  Report Type: 
  Country: None (occurrence: None)
  Receive Date: 20070226
  Receipt Date: 20070223
  Transmission Date: 20070707
  Serious: Yes (Hospitalization)
  Sender: FDA-Public Use
  Company Number: US-GLAXOSMITHKLINE-A0592539A

PATIENT
  Age: 20 Year
  Sex: Female

DRUGS (5)
  1. PAXIL [Suspect]
     Route: 048
     Dates: start: 20010313, end: 20011201
  2. OXYCONTIN [Suspect]
     Indication: DRUG USE FOR UNKNOWN INDICATION
     Dosage: 2TAB SINGLE DOSE
     Route: 048
     Dates: start: 20011015, end: 20011015
  3. TYLENOL [Suspect]
     Indication: DRUG USE FOR UNKNOWN INDICATION
     Dosage: 3TAB SINGLE DOSE
     Route: 048
     Dates: start: 20011015, end: 20011015
  4. ETHANOL [Suspect]
     Route: 048
     Dates: start: 20011015, end: 20011015
  5. FLEXERIL [Concomitant]

REACTIONS (11)
  - AGITATION [None]
  - AKATHISIA [None]
  - DECREASED APPETITE [None]
  - DEPRESSION [None]
  - DISTURBANCE IN ATTENTION [None]
  - INSOMNIA [None]
  - INTENTIONAL OVERDOSE [None]
  - NAUSEA [None]
  - NIGHTMARE [None]
  - SUICIDE ATTEMPT [None]
  - TRICHOTILLOMANIA [None]
